FAERS Safety Report 25985614 (Version 1)
Quarter: 2025Q4

REPORT INFORMATION
  Report Type: Spontaneous
  Country: US (occurrence: US)
  Receive Date: 20251031
  Receipt Date: 20251031
  Transmission Date: 20260117
  Serious: Yes (Other)
  Sender: ELI LILLY AND COMPANY
  Company Number: US-ELI_LILLY_AND_COMPANY-US202510024578

PATIENT
  Age: 65 Year
  Sex: Male

DRUGS (1)
  1. RAMUCIRUMAB [Suspect]
     Active Substance: RAMUCIRUMAB
     Indication: Oesophageal adenocarcinoma
     Dosage: UNK, UNKNOWN
     Route: 065

REACTIONS (1)
  - Renal-limited thrombotic microangiopathy [Unknown]
